FAERS Safety Report 9907364 (Version 3)
Quarter: 2014Q2

REPORT INFORMATION
  Report Type: Report from Study
  Country: DE (occurrence: DE)
  Receive Date: 20140218
  Receipt Date: 20140603
  Transmission Date: 20141212
  Serious: Yes (Other)
  Sender: FDA-Public Use
  Company Number: DE-US-EMD SERONO, INC.-7263020

PATIENT
  Age: 37 Year
  Sex: Female

DRUGS (3)
  1. REBIF [Suspect]
     Indication: MULTIPLE SCLEROSIS
     Route: 058
     Dates: start: 200503
  2. REBIF [Suspect]
     Route: 058
     Dates: start: 2011
  3. REBIF [Suspect]
     Route: 058
     Dates: start: 201201, end: 20140110

REACTIONS (3)
  - Abortion spontaneous [Unknown]
  - Multiple sclerosis relapse [Unknown]
  - Maternal exposure timing unspecified [Recovered/Resolved]
